FAERS Safety Report 5507770-X (Version None)
Quarter: 2007Q4

REPORT INFORMATION
  Report Type: 
  Country: None (occurrence: None)
  Receive Date: 20071106
  Receipt Date: 20071025
  Transmission Date: 20080405
  Serious: Yes (Death, Other)
  Sender: FDA-Public Use
  Company Number: CA-AMGEN-KDL243529

PATIENT
  Sex: Male
  Weight: 45.4 kg

DRUGS (8)
  1. ENBREL [Suspect]
     Indication: ANKYLOSING SPONDYLITIS
     Route: 058
     Dates: start: 20070207, end: 20070827
  2. OXYCONTIN [Suspect]
     Dates: start: 20060515, end: 20070827
  3. OXYCONTIN [Suspect]
     Dates: start: 20070515, end: 20070827
  4. FENTANYL [Suspect]
     Route: 062
     Dates: start: 20070827, end: 20070911
  5. CLONIDINE [Concomitant]
     Dates: start: 20060101, end: 20070911
  6. IBUPROFEN [Concomitant]
     Dates: start: 20060101, end: 20070911
  7. ESZOPICLONE [Concomitant]
     Dates: start: 20060101, end: 20070911
  8. MORPHINE [Concomitant]
     Route: 048

REACTIONS (11)
  - BACTERIAL INFECTION [None]
  - CORONARY ARTERY OCCLUSION [None]
  - DRUG WITHDRAWAL SYNDROME [None]
  - INFECTED INSECT BITE [None]
  - LIMB DISCOMFORT [None]
  - MOTOR DYSFUNCTION [None]
  - MYOCARDIAL INFARCTION [None]
  - OVERDOSE [None]
  - RASH [None]
  - SKIN LESION [None]
  - WEST NILE VIRAL INFECTION [None]
